FAERS Safety Report 8240425-X (Version None)
Quarter: 2012Q1

REPORT INFORMATION
  Report Type: 
  Country: None (occurrence: None)
  Receive Date: 20120328
  Receipt Date: 20120320
  Transmission Date: 20120608
  Serious: Yes (Hospitalization)
  Sender: FDA-Public Use
  Company Number: FR-ROCHE-1017039

PATIENT
  Sex: Female
  Weight: 59 kg

DRUGS (6)
  1. MEDROL [Concomitant]
     Route: 048
  2. AVASTIN [Suspect]
     Indication: BRAIN NEOPLASM MALIGNANT
     Dosage: LAST DOSE PRIOR TO SAE: 2 MAR 2011
     Dates: start: 20101214
  3. LOVENOX [Concomitant]
     Route: 058
  4. NEXIUM [Concomitant]
     Route: 048
  5. TEMOZOLOMIDE [Suspect]
     Indication: BRAIN NEOPLASM MALIGNANT
     Dosage: LAST DOSE PRIOR TO SAE: 15-FEB-2011
     Route: 048
     Dates: start: 20101214
  6. BACTRIM [Concomitant]
     Dosage: 1 TABLET
     Route: 048

REACTIONS (2)
  - ILL-DEFINED DISORDER [None]
  - GAIT DISTURBANCE [None]
